FAERS Safety Report 7329989-8 (Version None)
Quarter: 2011Q1

REPORT INFORMATION
  Report Type: 
  Country: None (occurrence: None)
  Receive Date: 20110303
  Receipt Date: 20110301
  Transmission Date: 20110831
  Serious: Yes (Death)
  Sender: FDA-Public Use
  Company Number: US-ABBOTT-10P-163-0673306-00

PATIENT
  Sex: Female
  Weight: 85.806 kg

DRUGS (30)
  1. FERROUS SULFATE TAB [Concomitant]
     Indication: BLOOD COUNT
  2. ADVAIR DISKUS 100/50 [Concomitant]
     Indication: ASTHMA
  3. LOPRESSOR [Concomitant]
     Indication: BLOOD CHOLESTEROL INCREASED
  4. NYSTATIN [Concomitant]
     Indication: PRODUCT USED FOR UNKNOWN INDICATION
     Route: 061
  5. HUMALIN [Concomitant]
     Indication: DIABETES MELLITUS
     Dosage: DIABETES SLIDING SCALE
  6. FLUOCINONIDE [Concomitant]
     Route: 061
  7. ARICEPT [Concomitant]
     Indication: DEMENTIA
  8. CARDIZEM [Concomitant]
     Indication: HYPERTENSION
  9. CHOLESTYRIME [Concomitant]
     Indication: GASTROINTESTINAL DISORDER
     Dosage: 1 DOSE ORALLY
  10. ADVAIR DISKUS 100/50 [Concomitant]
     Indication: CARDIAC FAILURE CONGESTIVE
  11. FLUOCINONIDE [Concomitant]
     Indication: PRURITUS
     Route: 061
  12. NAMENDA [Concomitant]
     Indication: DEMENTIA
  13. BETOPTIC [Concomitant]
     Indication: INTRAOCULAR PRESSURE INCREASED
     Dosage: 1 DROP IN LEFT EYE TWICE DAILY
  14. ZEMPLAR [Suspect]
     Indication: NEPHROPATHY
     Dates: start: 20080701, end: 20100101
  15. ALLEGRA [Concomitant]
     Indication: PRURITUS
  16. TORSEMIDE [Concomitant]
     Indication: CARDIAC FAILURE CONGESTIVE
     Dosage: BY WEIGHT
  17. XALATAN [Concomitant]
     Indication: GLAUCOMA
     Dosage: 1 DROP BOTH EYES AT BEDTIME
  18. CITALOPRAM [Concomitant]
     Indication: DEPRESSION
  19. KEPPRA [Concomitant]
     Indication: CEREBROVASCULAR ACCIDENT
  20. LIPITOR [Concomitant]
     Indication: BLOOD CHOLESTEROL
  21. LANTUS [Concomitant]
     Indication: DIABETES MELLITUS
  22. PREDNISOLONE [Concomitant]
     Indication: PRODUCT USED FOR UNKNOWN INDICATION
  23. ALBUTEROL [Concomitant]
     Indication: CARDIAC FAILURE CONGESTIVE
     Dosage: NEBULIZER 0.5-3 CC EVERY 4 HOURS AS REQUIRED
  24. PLAVIX [Concomitant]
     Indication: CAROTID ARTERY DISEASE
  25. PREDNISONE [Concomitant]
     Indication: ASTHMA
  26. VIT C [Concomitant]
     Indication: PRODUCT USED FOR UNKNOWN INDICATION
  27. O2 [Concomitant]
     Indication: PRODUCT USED FOR UNKNOWN INDICATION
     Dosage: NASAL CANNULA
  28. SINGULAIR [Concomitant]
     Indication: ASTHMA
  29. ALPRAZOLAM [Concomitant]
     Indication: PRODUCT USED FOR UNKNOWN INDICATION
  30. PROCRIT [Concomitant]
     Indication: ANAEMIA
     Dosage: BLOOD COUNT DEPENDENT

REACTIONS (1)
  - CARDIAC FAILURE CONGESTIVE [None]
